FAERS Safety Report 4679850-2 (Version None)
Quarter: 2005Q2

REPORT INFORMATION
  Report Type: 
  Country: None (occurrence: None)
  Receive Date: 20050602
  Receipt Date: 20050217
  Transmission Date: 20051028
  Serious: No
  Sender: FDA-Public Use
  Company Number: US-GLAXOSMITHKLINE-A0546038A

PATIENT
  Age: 82 Year
  Sex: Female

DRUGS (3)
  1. AUGMENTIN [Suspect]
     Indication: ACUTE SINUSITIS
     Dosage: 1000MG FOUR TIMES PER DAY
     Route: 048
     Dates: start: 20050211
  2. UNIVASC [Concomitant]
  3. TEOPTIC [Concomitant]

REACTIONS (2)
  - DIARRHOEA [None]
  - DIZZINESS [None]
